FAERS Safety Report 8949635 (Version 1)
Quarter: 2012Q4

REPORT INFORMATION
  Report Type: 
  Country: GB (occurrence: GB)
  Receive Date: 20121206
  Receipt Date: 20121206
  Transmission Date: 20130627
  Serious: Yes (Disabling, Other)
  Sender: FDA-Public Use
  Company Number: GB-AMGEN-GBRSP2012077958

PATIENT
  Age: 60 Year
  Sex: Female

DRUGS (8)
  1. ENBREL [Suspect]
     Indication: PRODUCT USED FOR UNKNOWN INDICATION
     Dosage: 50mg unit dose
     Route: 058
     Dates: start: 201205
  2. SULFASALAZINE [Concomitant]
     Dosage: UNK
     Route: 048
  3. CITALOPRAM [Concomitant]
     Dosage: UNK
     Route: 048
  4. ESOMEPRAZOLE [Concomitant]
     Dosage: UNK
     Route: 048
  5. ALENDRONIC ACID [Concomitant]
     Dosage: UNK
     Route: 048
  6. TRAMADOL [Concomitant]
     Dosage: UNK
     Route: 048
  7. SYMBICORT [Concomitant]
     Indication: ASTHMA
     Dosage: UNK
     Route: 055
  8. VENTOLIN                           /00139501/ [Concomitant]
     Indication: ASTHMA
     Dosage: UNK
     Route: 055

REACTIONS (4)
  - Wheezing [Unknown]
  - Chest discomfort [Unknown]
  - Joint swelling [Unknown]
  - Cough [Unknown]
